FAERS Safety Report 5191789-5 (Version None)
Quarter: 2006Q4

REPORT INFORMATION
  Report Type: 
  Country: None (occurrence: None)
  Receive Date: 20061226
  Receipt Date: 20061130
  Transmission Date: 20070319
  Serious: Yes (Hospitalization)
  Sender: FDA-Public Use
  Company Number: GB-ELI_LILLY_AND_COMPANY-GB200611005364

PATIENT
  Age: 62 Year
  Sex: Male

DRUGS (17)
  1. GEMZAR [Suspect]
     Indication: PANCREATIC CARCINOMA
     Dosage: 1425 MG, UNK
     Route: 042
     Dates: end: 20061129
  2. GEMZAR [Suspect]
     Dosage: 1425 MG, UNK
     Route: 042
     Dates: end: 20061129
  3. GEMZAR [Suspect]
     Dosage: 1425 MG, UNK
     Route: 042
     Dates: end: 20061129
  4. DEXAMETHASONE [Concomitant]
     Indication: MALAISE
     Dosage: 4 MG, 3/D
  5. DEXAMETHASONE [Concomitant]
     Dosage: 2 MG, 3/D
     Route: 048
     Dates: end: 20061127
  6. METOCLOPRAMIDE [Concomitant]
     Indication: MALAISE
     Dosage: 10 MG, 3/D
     Route: 048
     Dates: end: 20061127
  7. LORAZEPAM [Concomitant]
     Indication: ANXIETY
     Dosage: 1 MG, AS NEEDED
     Route: 048
  8. PREDNISOLONE [Concomitant]
     Dosage: 30 MG, UNK
     Route: 048
  9. FILGRASTIM [Concomitant]
     Dosage: 300 MG, UNK
     Dates: start: 20061101
  10. CITALOPRAM HYDROBROMIDE [Concomitant]
     Dosage: 20 MG, DAILY (1/D)
  11. IRON SULFATETHIAMIN COMPOUND TAB [Concomitant]
  12. LANSOPRAZOLE [Concomitant]
     Dosage: 30 MG, DAILY (1/D)
     Route: 048
  13. PROCHLORPERAZINE [Concomitant]
     Dosage: 3 MG, 2/D
     Dates: start: 20061001
  14. GRANISETRON [Concomitant]
     Dosage: 1 MG, 2/D
     Dates: start: 20061001
  15. OXALIPLATIN [Concomitant]
     Indication: PANCREATIC CARCINOMA
     Dosage: 142.5 MG, UNK
     Route: 042
     Dates: end: 20061116
  16. CIPROFLOXACIN [Concomitant]
     Dosage: 500 MG, 2/D
     Dates: start: 20061001
  17. NAPROXEN [Concomitant]
     Indication: PAIN
     Dosage: 250 MG, 2/D
     Route: 048

REACTIONS (2)
  - ANAPHYLACTIC REACTION [None]
  - RASH [None]
